FAERS Safety Report 8148168-8 (Version None)
Quarter: 2012Q1

REPORT INFORMATION
  Report Type: 
  Country: None (occurrence: None)
  Receive Date: 20120218
  Receipt Date: 20110503
  Transmission Date: 20120608
  Serious: No
  Sender: FDA-Public Use
  Company Number: US-ALLERGAN-1102651US

PATIENT
  Age: 61 Year
  Sex: Female
  Weight: 77.098 kg

DRUGS (5)
  1. ZOMIG [Concomitant]
     Indication: MIGRAINE
     Dosage: 5 MG, PRN
  2. BOTULINUM TOXIN TYPE A [Suspect]
     Indication: MIGRAINE
     Dosage: 155 UNITS, SINGLE
     Dates: start: 20110301, end: 20110301
  3. CYMBALTA [Concomitant]
     Indication: DEPRESSION
     Dosage: 20 MG, QD
     Route: 048
  4. METACLOPRAMIDE [Concomitant]
     Indication: NAUSEA
     Dosage: 10 MG, PRN
     Route: 048
  5. SYNTHROID [Concomitant]
     Indication: HYPOTHYROIDISM
     Dosage: 0.1 A?G, QD
     Route: 048

REACTIONS (2)
  - MUSCULAR WEAKNESS [None]
  - INFLUENZA LIKE ILLNESS [None]
